FAERS Safety Report 9693964 (Version 2)
Quarter: 2013Q4

REPORT INFORMATION
  Report Type: Spontaneous
  Country: DE (occurrence: None)
  Receive Date: 20131114
  Receipt Date: 20131129
  Transmission Date: 20140711
  Serious: Yes (Other)
  Sender: FDA-Public Use
  Company Number: NGX_02094_2013

PATIENT
  Age: 49 Year
  Sex: Female

DRUGS (2)
  1. QUTENZA [Suspect]
     Indication: CARPAL TUNNEL SYNDROME
     Dosage: 2 0.5 PATCHES TO THE INNER SIDE OF THE RIGHT AND LEFT HAND (TOPICAL)
     Dates: start: 20131101, end: 20131101
  2. QUTENZA [Suspect]
     Indication: OFF LABEL USE
     Dosage: 2 0.5 PATCHES TO THE INNER SIDE OF THE RIGHT AND LEFT HAND (TOPICAL)
     Dates: start: 20131101, end: 20131101

REACTIONS (3)
  - Application site pain [None]
  - Application site erythema [None]
  - Pain [None]
